FAERS Safety Report 19014222 (Version 1)
Quarter: 2021Q1

REPORT INFORMATION
  Report Type: Spontaneous
  Country: US (occurrence: US)
  Receive Date: 20210316
  Receipt Date: 20210316
  Transmission Date: 20210420
  Serious: Yes (Hospitalization)
  Sender: FDA-Public Use
  Company Number: US-BRISTOL-MYERS SQUIBB COMPANY-BMS-2021-024150

PATIENT
  Sex: Male

DRUGS (2)
  1. ELIQUIS [Suspect]
     Active Substance: APIXABAN
     Indication: PRODUCT USED FOR UNKNOWN INDICATION
     Dosage: 5 MILLIGRAM, BID
     Route: 048
  2. ELIQUIS [Suspect]
     Active Substance: APIXABAN
     Dosage: 1 TABLET (5MG) IN THE MORNING AND 1.5 TABLET (7.5MG) IN THE EVENING
     Route: 048
     Dates: start: 20210309

REACTIONS (3)
  - Hospitalisation [Unknown]
  - Prescribed overdose [Unknown]
  - Intentional product use issue [Unknown]
